FAERS Safety Report 8434683-6 (Version None)
Quarter: 2012Q2

REPORT INFORMATION
  Report Type: 
  Country: None (occurrence: None)
  Receive Date: 20120614
  Receipt Date: 20120530
  Transmission Date: 20120825
  Serious: Yes (Other)
  Sender: FDA-Public Use
  Company Number: DE-ACCORD-013667

PATIENT
  Age: 62 Year
  Sex: Female

DRUGS (3)
  1. SORAFENIB [Concomitant]
     Route: 048
  2. CISPLATIN [Concomitant]
     Route: 042
  3. PACLITAXEL [Suspect]
     Route: 042

REACTIONS (2)
  - MACULOPATHY [None]
  - OFF LABEL USE [None]
